FAERS Safety Report 5028680-0 (Version None)
Quarter: 2006Q2

REPORT INFORMATION
  Report Type: 
  Country: None (occurrence: None)
  Receive Date: 20060501
  Receipt Date: 20060213
  Transmission Date: 20061013
  Serious: No
  Sender: FDA-Public Use
  Company Number: 200610848BWH

PATIENT
  Sex: Female

DRUGS (6)
  1. NEXAVAR [Suspect]
     Indication: RENAL CELL CARCINOMA STAGE UNSPECIFIED
     Dosage: 400 MG, BID, ORAL
     Route: 048
     Dates: start: 20060123
  2. ASPIRIN [Concomitant]
  3. PAMELOR [Concomitant]
  4. NORTRIPTYLINE HCL [Concomitant]
  5. EVISTA [Concomitant]
  6. .. [Concomitant]

REACTIONS (3)
  - CANDIDIASIS [None]
  - DECREASED APPETITE [None]
  - RASH PRURITIC [None]
